FAERS Safety Report 6025936-X (Version None)
Quarter: 2008Q4

REPORT INFORMATION
  Report Type: 
  Country: None (occurrence: None)
  Receive Date: 20081230
  Receipt Date: 20081215
  Transmission Date: 20090506
  Serious: Yes (Hospitalization)
  Sender: FDA-Public Use
  Company Number: KV200801132

PATIENT
  Age: 54 Year
  Sex: Male
  Weight: 104.3 kg

DRUGS (1)
  1. MORPHINE SULFATE [Suspect]
     Indication: BACK PAIN
     Dosage: 15 MG, SINGLE, ORAL
     Route: 048
     Dates: start: 20080101, end: 20080101

REACTIONS (4)
  - CONVULSION [None]
  - PRODUCT QUALITY ISSUE [None]
  - RENAL FAILURE [None]
  - WEIGHT DECREASED [None]
